FAERS Safety Report 20291715 (Version 1)
Quarter: 2022Q1

REPORT INFORMATION
  Report Type: Spontaneous
  Country: US (occurrence: US)
  Receive Date: 20220104
  Receipt Date: 20220104
  Transmission Date: 20220424
  Serious: Yes (Hospitalization, Other)
  Sender: FDA-Public Use
  Company Number: US-GLAXOSMITHKLINE-US2021GSK261823

PATIENT
  Age: 30 Year
  Sex: Male

DRUGS (5)
  1. SULFAMERAZINE SODIUM\TRIMETHOPRIM [Suspect]
     Active Substance: SULFAMERAZINE SODIUM\TRIMETHOPRIM
     Indication: Dysuria
     Dosage: 160-800 MG
     Route: 048
  2. DAPSONE [Suspect]
     Active Substance: DAPSONE
     Indication: Pneumocystis jirovecii pneumonia
     Dosage: UNK
  3. RANITIDINE [Suspect]
     Active Substance: RANITIDINE
     Indication: Product used for unknown indication
     Dosage: UNK
  4. METHYLPREDNISOLONE [Suspect]
     Active Substance: METHYLPREDNISOLONE
     Indication: Product used for unknown indication
     Dosage: UNK
  5. SULFAMERAZINE SODIUM\TRIMETHOPRIM [Suspect]
     Active Substance: SULFAMERAZINE SODIUM\TRIMETHOPRIM
     Indication: Dysuria
     Dosage: UNK
     Route: 048

REACTIONS (21)
  - Meningitis aseptic [Recovered/Resolved]
  - Myelosuppression [Recovered/Resolved]
  - Disorientation [Recovered/Resolved]
  - Vomiting [Recovered/Resolved]
  - Diarrhoea [Recovered/Resolved]
  - Pain [Recovered/Resolved]
  - Pyrexia [Recovered/Resolved]
  - Rash [Recovered/Resolved]
  - Chills [Recovered/Resolved]
  - Headache [Recovered/Resolved]
  - Urosepsis [Recovered/Resolved]
  - Drug ineffective [Unknown]
  - Drug hypersensitivity [Recovered/Resolved]
  - Illness [Recovered/Resolved]
  - Hypotension [Recovered/Resolved]
  - Dizziness [Recovered/Resolved]
  - Febrile neutropenia [Recovered/Resolved]
  - Septic shock [Recovered/Resolved]
  - Photophobia [Recovered/Resolved]
  - Tachycardia [Recovered/Resolved]
  - Chills [Recovered/Resolved]
